FAERS Safety Report 6752402-6 (Version None)
Quarter: 2010Q2

REPORT INFORMATION
  Report Type: 
  Country: None (occurrence: None)
  Receive Date: 20100601
  Receipt Date: 20100601
  Transmission Date: 20101027
  Serious: Yes (Other)
  Sender: FDA-Public Use
  Company Number: None

PATIENT
  Sex: Male
  Weight: 61 kg

DRUGS (1)
  1. KETAMINE HCL [Suspect]
     Indication: FRACTURE REDUCTION
     Dosage: 75 MG 1TIME IV BOLUS
     Route: 040
     Dates: start: 20100524, end: 20100524

REACTIONS (2)
  - APNOEA [None]
  - PRODUCT SUBSTITUTION ISSUE [None]
